FAERS Safety Report 16908022 (Version 1)
Quarter: 2019Q4

REPORT INFORMATION
  Report Type: Spontaneous
  Country: UG (occurrence: UG)
  Receive Date: 20191011
  Receipt Date: 20191011
  Transmission Date: 20200122
  Serious: Yes (Congenital Anomaly, Other)
  Sender: FDA-Public Use
  Company Number: UG-HETERO-HET2019UG01400

PATIENT
  Sex: Male
  Weight: 2.68 kg

DRUGS (2)
  1. NEVIRAPINE. [Suspect]
     Active Substance: NEVIRAPINE
     Indication: HIV INFECTION
     Dosage: 400 MG, QD
     Route: 064
     Dates: start: 20100725
  2. LAMIVUDINE AND ZIDOVUDINE [Suspect]
     Active Substance: LAMIVUDINE\ZIDOVUDINE
     Indication: HIV INFECTION
     Dosage: 1 DOSAGE FORM, BID
     Route: 064
     Dates: start: 20100725

REACTIONS (3)
  - Foetal exposure during pregnancy [Unknown]
  - Congenital umbilical hernia [Unknown]
  - Birth mark [Unknown]
